FAERS Safety Report 7906641 (Version 6)
Quarter: 2012Q4

REPORT INFORMATION
  Report Type: Report from Study
  Country: DE (occurrence: DE)
  Receive Date: 20110420
  Receipt Date: 20121109
  Transmission Date: 20130627
  Serious: Yes (Death, Hospitalization)
  Sender: FDA-Public Use
  Company Number: DE-SANOFI-AVENTIS-2011SA006751

PATIENT
  Age: 77 Year
  Sex: Male
  Weight: 94 kg

DRUGS (10)
  1. CABAZITAXEL [Suspect]
     Indication: PROSTATE CANCER
     Route: 042
     Dates: start: 20110120, end: 20110120
  2. PREDNISOLONE [Suspect]
     Indication: PROSTATE CANCER
     Dates: start: 20110120
  3. AMLODIPINE [Concomitant]
  4. PHENPROCOUMON [Concomitant]
  5. BISOPROLOL [Concomitant]
  6. DEKRISTOL [Concomitant]
  7. TORASEMIDE [Concomitant]
  8. SIMVASTATIN [Concomitant]
  9. METOCLOPRAMIDE [Concomitant]
  10. PANTOZOL [Concomitant]

REACTIONS (5)
  - Sepsis [Fatal]
  - Pancytopenia [Fatal]
  - Enterocolitis [Not Recovered/Not Resolved]
  - Renal failure [Not Recovered/Not Resolved]
  - Disease progression [Fatal]
